FAERS Safety Report 10162534 (Version 1)
Quarter: 2014Q2

REPORT INFORMATION
  Report Type: Spontaneous
  Country: US (occurrence: US)
  Receive Date: 20140509
  Receipt Date: 20140509
  Transmission Date: 20141212
  Serious: Yes (Other)
  Sender: FDA-Public Use
  Company Number: US-SA-2014SA059545

PATIENT
  Age: 82 Year
  Sex: Female

DRUGS (3)
  1. LANTUS SOLOSTAR [Suspect]
     Indication: TYPE 2 DIABETES MELLITUS
     Dosage: AM AND PM DOSE:35 UNIT(S)
     Route: 065
  2. SOLOSTAR [Suspect]
     Indication: DEVICE THERAPY
  3. NOVOLOG [Concomitant]

REACTIONS (7)
  - Dementia [Unknown]
  - Anxiety [Unknown]
  - Dyspnoea [Unknown]
  - Injection site mass [Unknown]
  - Injury associated with device [Unknown]
  - Incorrect product storage [Unknown]
  - Drug administration error [Unknown]
